FAERS Safety Report 19746094 (Version 1)
Quarter: 2021Q3

REPORT INFORMATION
  Report Type: Spontaneous
  Country: FR (occurrence: FR)
  Receive Date: 20210825
  Receipt Date: 20210825
  Transmission Date: 20211014
  Serious: Yes (Hospitalization)
  Sender: FDA-Public Use
  Company Number: FR-ORGANON-O2108FRA001478

PATIENT
  Age: 53 Year
  Sex: Female
  Weight: 83 kg

DRUGS (2)
  1. COMIRNATY [Suspect]
     Active Substance: TOZINAMERAN
     Indication: COVID-19 IMMUNISATION
     Dosage: 2 DOSAGE FORM, CONCENTRATE FOR DISPERSION FOR INJECTION. COVID?19 MRNA VACCINE (NUCLEOSIDE MODIFIED)
     Route: 030
     Dates: start: 20210428, end: 20210607
  2. NORSET [Suspect]
     Active Substance: MIRTAZAPINE
     Indication: MIXED ANXIETY AND DEPRESSIVE DISORDER
     Dosage: 15 MILLIGRAM, QD, THEN 30 MG STARTING FROM 19?MAY?2021
     Route: 048
     Dates: start: 20210318

REACTIONS (2)
  - Influenza like illness [Recovered/Resolved]
  - Hepatic cytolysis [Recovered/Resolved]

NARRATIVE: CASE EVENT DATE: 20210610
